FAERS Safety Report 5651053-4 (Version None)
Quarter: 2008Q2

REPORT INFORMATION
  Report Type: 
  Country: None (occurrence: None)
  Receive Date: 20080305
  Receipt Date: 20080228
  Transmission Date: 20081010
  Serious: Yes (Other)
  Sender: FDA-Public Use
  Company Number: B0499977A

PATIENT
  Age: 58 Year
  Sex: Male
  Weight: 66 kg

DRUGS (6)
  1. PAXIL [Suspect]
     Indication: DEPRESSION
     Dosage: 20MG PER DAY
     Route: 048
     Dates: start: 20040317, end: 20051005
  2. FLUVOXAMINE MALEATE [Suspect]
     Indication: DEPRESSION
     Dosage: 50MG THREE TIMES PER DAY
     Route: 048
     Dates: start: 20040317, end: 20050921
  3. SEPAZON [Suspect]
     Indication: ANXIETY
     Dosage: 1MG THREE TIMES PER DAY
     Route: 048
     Dates: start: 20040317, end: 20050921
  4. FLUPHENAZINE [Suspect]
     Indication: ANXIETY
     Dosage: .25MG THREE TIMES PER DAY
     Route: 048
     Dates: start: 20040317, end: 20050921
  5. ARTANE [Suspect]
     Indication: TREMOR
     Dosage: 1MG THREE TIMES PER DAY
     Route: 048
     Dates: end: 20050921
  6. MYSLEE [Concomitant]
     Indication: INSOMNIA
     Dosage: 10MG PER DAY
     Route: 048
     Dates: start: 20040317

REACTIONS (5)
  - DEPRESSED LEVEL OF CONSCIOUSNESS [None]
  - DEPRESSED MOOD [None]
  - ELECTROENCEPHALOGRAM ABNORMAL [None]
  - LISTLESS [None]
  - MEMORY IMPAIRMENT [None]
